FAERS Safety Report 7905957-X (Version None)
Quarter: 2011Q4

REPORT INFORMATION
  Report Type: 
  Country: None (occurrence: None)
  Receive Date: 20111110
  Receipt Date: 20111101
  Transmission Date: 20120403
  Serious: Yes (Hospitalization, Other)
  Sender: FDA-Public Use
  Company Number: PHHY2011GB96275

PATIENT
  Age: 81 Year
  Sex: Male
  Weight: 92 kg

DRUGS (11)
  1. ATORVASTATIN [Concomitant]
  2. WARFARIN SODIUM [Suspect]
  3. FEBUXOSTAT [Interacting]
     Indication: GOUT
     Dosage: 80 MG, UNK
     Route: 048
     Dates: start: 20110909
  4. ALFACALCIDOL [Concomitant]
  5. DUTASTERIDE [Concomitant]
  6. PANTOPRAZOLE [Concomitant]
  7. COLCHICINE [Interacting]
  8. ATENOLOL [Concomitant]
  9. AMITRIPTYLINE HCL [Concomitant]
  10. FUROSEMIDE [Concomitant]
  11. TAMSULOSIN HCL [Concomitant]

REACTIONS (2)
  - DRUG INTERACTION [None]
  - INTERNATIONAL NORMALISED RATIO INCREASED [None]
